FAERS Safety Report 10554195 (Version 2)
Quarter: 2015Q1

REPORT INFORMATION
  Report Type: Spontaneous
  Country: US (occurrence: None)
  Receive Date: 20141028
  Receipt Date: 20150220
  Transmission Date: 20150720
  Serious: Yes (Other)
  Sender: FDA-Public Use
  Company Number: 201410088

PATIENT
  Age: 63 Year
  Sex: Male
  Weight: 67.59 kg

DRUGS (7)
  1. ANDRODERM [Suspect]
     Active Substance: TESTOSTERONE
     Dosage: 1 Y
     Dates: start: 1999, end: 2000
  2. DILTIAZEM [Concomitant]
     Active Substance: DILTIAZEM
  3. TESTIM [Suspect]
     Active Substance: TESTOSTERONE
     Indication: BLOOD TESTOSTERONE DECREASED
     Route: 062
     Dates: start: 2008, end: 2013
  4. PRAVASTATIN [Concomitant]
     Active Substance: PRAVASTATIN\PRAVASTATIN SODIUM
  5. DEPO-TESTOSTERONE [Suspect]
     Active Substance: TESTOSTERONE CYPIONATE
     Dosage: BIWEEKLY
     Dates: start: 2000
  6. ANDROGEL [Suspect]
     Active Substance: TESTOSTERONE
     Dates: start: 2000, end: 2003
  7. TESTIM [Suspect]
     Active Substance: TESTOSTERONE
     Indication: HYPOGONADISM
     Route: 062
     Dates: start: 2008, end: 2013

REACTIONS (3)
  - Cardiovascular disorder [None]
  - Economic problem [None]
  - Partner stress [None]

NARRATIVE: CASE EVENT DATE: 20111011
